FAERS Safety Report 5995266-0 (Version None)
Quarter: 2008Q4

REPORT INFORMATION
  Report Type: 
  Country: None (occurrence: None)
  Receive Date: 20081210
  Receipt Date: 20081125
  Transmission Date: 20090506
  Serious: Yes (Other)
  Sender: FDA-Public Use
  Company Number: 2008AL012011

PATIENT
  Age: 66 Year
  Sex: Male

DRUGS (3)
  1. CARBAMAZEPINE  (CARBAMAZEPINE TABLETS USP) [Suspect]
     Indication: EPILEPSY
     Dosage: 400 MG;BID;PO
     Route: 048
  2. PHENOBARBITAL TABLETS USP          (PHENOBARBITAL TABLETS USP, [Suspect]
     Indication: EPILEPSY
     Dosage: 100 MG;QD;PO
     Route: 048
  3. CLARITHROMYCIN [Concomitant]

REACTIONS (6)
  - BALANCE DISORDER [None]
  - DIPLOPIA [None]
  - DRUG TOXICITY [None]
  - DYSARTHRIA [None]
  - OVERDOSE [None]
  - SINUSITIS [None]
